FAERS Safety Report 8525178-X (Version None)
Quarter: 2012Q3

REPORT INFORMATION
  Report Type: 
  Country: None (occurrence: None)
  Receive Date: 20120720
  Receipt Date: 20120716
  Transmission Date: 20120928
  Serious: No
  Sender: FDA-Public Use
  Company Number: PHHY2012BR061950

PATIENT
  Age: 40 Year
  Sex: Female

DRUGS (2)
  1. DASATINIB [Concomitant]
  2. TASIGNA [Suspect]
     Dosage: UNK

REACTIONS (2)
  - HYPERSENSITIVITY [None]
  - DIARRHOEA [None]
